FAERS Safety Report 5720330-0 (Version None)
Quarter: 2008Q2

REPORT INFORMATION
  Report Type: 
  Country: None (occurrence: None)
  Receive Date: 20080423
  Receipt Date: 20070507
  Transmission Date: 20081010
  Serious: Yes (Death)
  Sender: FDA-Public Use
  Company Number: 241657

PATIENT
  Sex: Female

DRUGS (6)
  1. AVASTIN [Suspect]
     Indication: COLORECTAL CANCER
  2. AVASTIN [Suspect]
     Indication: HEPATIC NEOPLASM MALIGNANT
  3. XELODA [Suspect]
     Indication: COLORECTAL CANCER
  4. XELODA [Suspect]
     Indication: HEPATIC NEOPLASM MALIGNANT
  5. ELOXATIN [Concomitant]
     Indication: COLORECTAL CANCER
  6. ELOXATIN [Concomitant]
     Indication: HEPATIC NEOPLASM MALIGNANT

REACTIONS (1)
  - DISEASE PROGRESSION [None]
